FAERS Safety Report 8660992 (Version 3)
Quarter: 2013Q4

REPORT INFORMATION
  Report Type: Spontaneous
  Country: US (occurrence: US)
  Receive Date: 20120711
  Receipt Date: 20131023
  Transmission Date: 20140711
  Serious: Yes (Hospitalization, Other)
  Sender: FDA-Public Use
  Company Number: US-ASTRAZENECA-2012SE44561

PATIENT
  Age: 72 Year
  Sex: Female
  Weight: 111.1 kg

DRUGS (21)
  1. SYMBICORT PMDI [Suspect]
     Indication: CHRONIC OBSTRUCTIVE PULMONARY DISEASE
     Dosage: 160/4.5 MCG 2 PUFFS TWO TIMES A DAYS
     Route: 055
     Dates: end: 20131007
  2. SYMBICORT PMDI [Suspect]
     Indication: ASTHMA
     Dosage: 160/4.5 MCG 2 PUFFS TWO TIMES A DAYS
     Route: 055
     Dates: end: 20131007
  3. OMEPRAZOLE [Suspect]
     Route: 048
  4. METOPROLOL SUCCINATE [Suspect]
     Indication: HYPERTENSION
     Route: 048
     Dates: start: 2008
  5. METOPROLOL SUCCINATE [Suspect]
     Indication: HYPERTENSION
     Route: 048
  6. METOPROLOL SUCCINATE [Suspect]
     Indication: HYPERTENSION
     Route: 048
     Dates: start: 2012
  7. PREDNISONE [Concomitant]
     Route: 048
  8. SINGULAIR [Concomitant]
     Route: 048
  9. PROAIR HFA [Concomitant]
     Indication: DYSPNOEA
     Dosage: 108 90 BASE MCG/ACT INHALE 2 PUFFS 3 TIMES A DAY AS NEEDED
     Route: 055
  10. SPIRIVA HANDI HALER [Concomitant]
     Dosage: 18 MCG 1 CAPSULE INHALATION ONCE A DAY
  11. FUROSEMIDE [Concomitant]
     Route: 048
  12. MULTI VITAMIN/ MINERALS [Concomitant]
     Route: 048
  13. VITAMIN D [Concomitant]
     Route: 048
  14. KLOR-CON [Concomitant]
     Dosage: 10 MEQ 1 TABLET ORALLY ONCE A DAY
     Route: 048
  15. LOVASTATIN [Concomitant]
     Route: 048
  16. BRIMONIDLINE TARTRATE [Concomitant]
     Route: 047
  17. ALLOPURINOL [Concomitant]
     Indication: GOUT
     Route: 048
  18. ALLOPURINOL [Concomitant]
     Indication: GOUT
     Route: 048
  19. ALBUTEROL [Concomitant]
     Indication: DYSPNOEA
     Dosage: AS REQUIRED
     Route: 055
  20. IPRATROPIUM BROMIDE [Concomitant]
     Indication: DYSPNOEA
     Dosage: THREE TIMEAS A DAY
     Route: 055
  21. PRENIDINE [Concomitant]
     Indication: DIABETES MELLITUS
     Route: 048
     Dates: start: 2013

REACTIONS (13)
  - Neoplasm malignant [Unknown]
  - Renal disorder [Unknown]
  - Dyspnoea [Recovered/Resolved]
  - Disability [Unknown]
  - Joint swelling [Unknown]
  - Blood uric acid increased [Recovered/Resolved]
  - Gout [Unknown]
  - Diabetes mellitus [Unknown]
  - Chest X-ray abnormal [Unknown]
  - Blood sodium decreased [Recovered/Resolved]
  - Dyspnoea [Unknown]
  - Intentional drug misuse [Not Recovered/Not Resolved]
  - Drug dose omission [Unknown]
